FAERS Safety Report 6732541-6 (Version None)
Quarter: 2010Q2

REPORT INFORMATION
  Report Type: 
  Country: None (occurrence: None)
  Receive Date: 20100519
  Receipt Date: 20091103
  Transmission Date: 20101027
  Serious: Yes (Hospitalization)
  Sender: FDA-Public Use
  Company Number: US-JNJCH-2010011836

PATIENT
  Sex: Female

DRUGS (35)
  1. ZYRTEC [Suspect]
     Indication: HYPERSENSITIVITY
     Dosage: TEXT:UNKNOWN
     Route: 065
  2. ZYRTEC [Suspect]
     Dosage: TEXT:SLOW DOWNTITRATION
     Route: 065
  3. XYREM [Suspect]
     Indication: CATAPLEXY
     Dosage: TEXT:2.25 MG BID, TWICE NIGHTLY
     Route: 048
     Dates: start: 20060501, end: 20060501
  4. XYREM [Suspect]
     Indication: NARCOLEPSY
     Dosage: TEXT:2.125 G BID, TWICE NIGHTLY
     Route: 048
     Dates: start: 20060501, end: 20061101
  5. XYREM [Suspect]
     Dosage: TEXT:2.25 G BID, TWICE NIGHTLY
     Route: 048
     Dates: start: 20090126, end: 20090129
  6. XYREM [Suspect]
     Dosage: TEXT:1.125 G BID, TWICE NIGHTLY
     Route: 048
     Dates: start: 20090130, end: 20090101
  7. XYREM [Suspect]
     Dosage: TEXT:2.25 G BID, TWICE NIGHTLY
     Route: 048
     Dates: start: 20090423, end: 20090101
  8. XYREM [Suspect]
     Dosage: TEXT:4.25 G BID, TWICE NIGHTLY
     Route: 048
     Dates: start: 20090702, end: 20090101
  9. XYREM [Suspect]
     Dosage: TEXT:4.5 G QD, ONCE NIGHTLY
     Route: 048
  10. CLONAZEPAM [Suspect]
     Indication: CONVULSION
     Dosage: TEXT:UNKNOWN
     Route: 065
  11. CLONAZEPAM [Suspect]
     Dosage: TEXT:SLOW DOWNTITRATION
     Route: 065
  12. AMITRIPTLINE HYDROCHLORIDE TAB [Suspect]
     Indication: RELAXATION THERAPY
     Dosage: TEXT:UNKNOWN
     Route: 065
  13. AMITRIPTLINE HYDROCHLORIDE TAB [Suspect]
     Dosage: TEXT:SLOW DOWNTITRATION
     Route: 065
  14. MIRAPEX [Suspect]
     Indication: RESTLESS LEGS SYNDROME
     Dosage: TEXT:UNKNOWN
     Route: 065
  15. MIRAPEX [Suspect]
     Dosage: TEXT:SLOW DOWNTITRATION
     Route: 065
  16. ZOLOFT [Suspect]
     Indication: ANXIETY
     Dosage: TEXT:UNKNOWN
     Route: 065
  17. ZOLOFT [Suspect]
     Dosage: TEXT:SLOW DOWNTITRATION
     Route: 065
  18. LYRICA [Suspect]
     Indication: PAIN
     Dosage: TEXT:UNKNOWN
     Route: 065
  19. LYRICA [Suspect]
     Indication: CONVULSION
     Dosage: TEXT:SLOW DOWNTITRATION
     Route: 065
  20. OMEPRAZOLE [Suspect]
     Indication: GASTROOESOPHAGEAL REFLUX DISEASE
     Dosage: TEXT:UNKNOWN
     Route: 065
  21. OMEPRAZOLE [Suspect]
     Dosage: TEXT:SLOW DOWNTITRATION
     Route: 065
  22. FUROSEMIDE [Concomitant]
     Indication: JOINT SWELLING
     Dosage: TEXT:UNKNOWN
     Route: 065
  23. FUROSEMIDE [Concomitant]
     Indication: DYSPNOEA
  24. FUROSEMIDE [Concomitant]
     Indication: FLUID RETENTION
  25. INSULIN GLARGINE [Concomitant]
     Indication: DIABETES MELLITUS
     Dosage: TEXT:UNKNOWN
     Route: 065
  26. REPAGLINIDE [Concomitant]
     Indication: DIABETES MELLITUS
     Dosage: TEXT:UNKNOWN
     Route: 065
  27. ERYTHROMYCIN [Concomitant]
     Indication: IMPAIRED GASTRIC EMPTYING
     Dosage: TEXT:250 MG QD
     Route: 065
  28. URSODIOL [Concomitant]
     Indication: LIVER DISORDER
     Dosage: TEXT:UNKNOWN
     Route: 065
  29. LEVOCARNITINE [Concomitant]
     Indication: CARNITINE DEFICIENCY
     Dosage: TEXT:UNKNOWN
     Route: 065
  30. METOPROLOL TARTRATE [Concomitant]
     Indication: HEART RATE INCREASED
     Dosage: TEXT:UNKNOWN
     Route: 065
  31. TOPIRAMATE [Concomitant]
     Indication: CONVULSION
     Dosage: TEXT:UNKNOWN
     Route: 065
  32. HYDROCHLOROTHIAZIDE [Concomitant]
     Indication: FLUID RETENTION
     Dosage: TEXT:UNKNOWN
     Route: 065
  33. MODAFINIL [Concomitant]
     Indication: NARCOLEPSY
     Dosage: TEXT:UNKNOWN
     Route: 065
  34. SPIRONOLACTONE [Concomitant]
     Indication: SWELLING
     Dosage: TEXT:UNKNOWN
     Route: 065
  35. LISINOPRIL [Concomitant]
     Indication: HYPERTENSION
     Dosage: TEXT:UNKNOWN
     Route: 065

REACTIONS (5)
  - ASTHENIA [None]
  - BALANCE DISORDER [None]
  - BLOOD CREATINE PHOSPHOKINASE INCREASED [None]
  - HYPOTONIA [None]
  - MUSCULAR WEAKNESS [None]
